FAERS Safety Report 7260707-8 (Version None)
Quarter: 2011Q1

REPORT INFORMATION
  Report Type: 
  Country: None (occurrence: None)
  Receive Date: 20110130
  Receipt Date: 20101221
  Transmission Date: 20110831
  Serious: No
  Sender: FDA-Public Use
  Company Number: US-ABBOTT-10P-163-0693078-00

PATIENT
  Age: 59 Year
  Sex: Female

DRUGS (7)
  1. HUMIRA [Suspect]
     Indication: CROHN'S DISEASE
     Dosage: DAY 1
     Route: 058
     Dates: start: 20100920
  2. UNKNOWN MEDICATION FOR HIGH BLOOD PRESSURE [Concomitant]
     Indication: RAYNAUD'S PHENOMENON
  3. UNKNOWN MEDICATION FOR RAYNAUD'S [Concomitant]
     Indication: HORMONE REPLACEMENT THERAPY
  4. HUMIRA [Suspect]
     Route: 058
     Dates: end: 20101101
  5. HUMIRA [Suspect]
     Dosage: DAY 15
     Route: 058
  6. HUMIRA [Suspect]
     Dosage: DAY 29
     Route: 058
  7. UNKNOWN HORMONE REPLACEMENT [Concomitant]
     Indication: HYPERTENSION

REACTIONS (1)
  - DRUG INEFFECTIVE [None]
